FAERS Safety Report 7390034-X (Version None)
Quarter: 2011Q1

REPORT INFORMATION
  Report Type: 
  Country: None (occurrence: None)
  Receive Date: 20110324
  Receipt Date: 20110315
  Transmission Date: 20110831
  Serious: Yes (Hospitalization)
  Sender: FDA-Public Use
  Company Number: UTC-005623

PATIENT
  Age: 45 Year
  Sex: Female
  Weight: 97 kg

DRUGS (2)
  1. TRACLEER [Concomitant]
  2. REMODULIN [Suspect]
     Dosage: 46.08 UG/KG (0.32 UG/KG, 1 IN 1 MIN)
     Dates: start: 20101022

REACTIONS (4)
  - FLUID OVERLOAD [None]
  - CONDITION AGGRAVATED [None]
  - PULMONARY HYPERTENSION [None]
  - COR PULMONALE [None]
